FAERS Safety Report 8599470-7 (Version None)
Quarter: 2012Q3

REPORT INFORMATION
  Report Type: 
  Country: None (occurrence: None)
  Receive Date: 20120816
  Receipt Date: 20120807
  Transmission Date: 20120928
  Serious: No
  Sender: FDA-Public Use
  Company Number: US-ASTRAZENECA-2012SE55915

PATIENT
  Age: 59 Year
  Sex: Male

DRUGS (34)
  1. METOPROLOL TARTRATE [Concomitant]
     Indication: HYPERTENSION
  2. SIMVASTATIN [Concomitant]
     Indication: HYPERLIPIDAEMIA
  3. STRATTERA [Concomitant]
     Indication: ATTENTION DEFICIT/HYPERACTIVITY DISORDER
  4. MICONAZOLE NITRATE [Concomitant]
     Indication: CHEMICAL POISONING
  5. CITALOPRAM [Concomitant]
     Indication: DEPRESSION
  6. GABAPENTIN [Concomitant]
     Indication: NERVE INJURY
  7. GABAPENTIN [Concomitant]
     Indication: TREMOR
  8. CINNAMON [Concomitant]
     Indication: DIABETES MELLITUS
  9. NEOSPORIN [Concomitant]
  10. METFORMIN HCL [Concomitant]
  11. PROZAC [Concomitant]
     Indication: DEPRESSION
  12. BUSPIRONE HCL [Concomitant]
     Indication: OBSESSIVE-COMPULSIVE DISORDER
  13. SENIOR VITAMIN [Concomitant]
  14. MOMETASONE FUROATE [Concomitant]
     Indication: STEROID THERAPY
  15. NORVASC [Concomitant]
  16. BUSPIRONE HCL [Concomitant]
     Indication: DEPRESSION
  17. SEROQUEL [Concomitant]
  18. ASPIRIN [Concomitant]
     Indication: ANTICOAGULANT THERAPY
  19. NEOMYCIN+POLYMYXIN+HY-CORT [Concomitant]
     Indication: DERMATITIS
  20. BENADRYL [Concomitant]
  21. ZESTRIL [Concomitant]
     Indication: HYPERTENSION
  22. LOTRISONE [Concomitant]
     Indication: STEROID THERAPY
  23. ZYRTEC [Concomitant]
     Indication: HYPERSENSITIVITY
  24. FENOFIBRATE [Concomitant]
     Indication: HYPERLIPIDAEMIA
  25. LEVAQUIN [Concomitant]
     Indication: INFECTION
  26. FISH OIL [Concomitant]
     Indication: HYPERLIPIDAEMIA
  27. CRESTOR [Suspect]
     Route: 048
  28. GLIMEPIRIDE [Concomitant]
     Indication: DIABETES MELLITUS
  29. CLARITIN [Concomitant]
     Indication: HYPERSENSITIVITY
  30. BACTROBAN [Concomitant]
  31. ZOLOFT [Concomitant]
     Indication: DEPRESSION
  32. ACTOS [Concomitant]
     Indication: DIABETES MELLITUS
  33. VITAMIN D [Concomitant]
  34. LOTRISONE [Concomitant]
     Indication: CHEMICAL POISONING

REACTIONS (1)
  - ADVERSE DRUG REACTION [None]
